FAERS Safety Report 6156724-1 (Version None)
Quarter: 2009Q2

REPORT INFORMATION
  Report Type: 
  Country: None (occurrence: None)
  Receive Date: 20090413
  Receipt Date: 20090413
  Transmission Date: 20091009
  Serious: Yes (Other)
  Sender: FDA-Public Use
  Company Number: None

PATIENT
  Age: 66 Year
  Sex: Male
  Weight: 92.9874 kg

DRUGS (10)
  1. SINGULAIR [Suspect]
     Indication: ASTHMA
     Dosage: 10MG.  DAILY PO
     Route: 048
     Dates: start: 20090310, end: 20090315
  2. SINGULAIR [Suspect]
     Indication: SEASONAL ALLERGY
     Dosage: 10MG.  DAILY PO
     Route: 048
     Dates: start: 20090310, end: 20090315
  3. SINGULAIR [Suspect]
     Indication: SLEEP DISORDER DUE TO GENERAL MEDICAL CONDITION, INSOMNIA TYPE
     Dosage: 10MG.  DAILY PO
     Route: 048
     Dates: start: 20090310, end: 20090315
  4. FLOVENT [Concomitant]
  5. ASPIRIN [Concomitant]
  6. SIMVASTATIN [Concomitant]
  7. ATENOLOL [Concomitant]
  8. CLONAZEPAM [Concomitant]
  9. SINEMET [Concomitant]
  10. NEXIUM [Concomitant]

REACTIONS (13)
  - ABNORMAL DREAMS [None]
  - ANGER [None]
  - FEAR [None]
  - INSOMNIA [None]
  - JOINT SWELLING [None]
  - NERVOUSNESS [None]
  - NIGHTMARE [None]
  - OEDEMA PERIPHERAL [None]
  - RESTLESSNESS [None]
  - SPEECH DISORDER [None]
  - STRESS [None]
  - TREMOR [None]
  - VERBAL ABUSE [None]
